FAERS Safety Report 13924850 (Version 3)
Quarter: 2020Q1

REPORT INFORMATION
  Report Type: Report from Study
  Country: CA (occurrence: CA)
  Receive Date: 20170831
  Receipt Date: 20200129
  Transmission Date: 20200409
  Serious: Yes (Other)
  Sender: FDA-Public Use
  Company Number: CA-GLAXOSMITHKLINE-CA2017GSK132621

PATIENT
  Age: 52 Year
  Sex: Female
  Weight: 79 kg

DRUGS (3)
  1. PREDNISONE. [Suspect]
     Active Substance: PREDNISONE
     Indication: ASTHMA
     Dosage: UNK
     Dates: start: 2000
  2. SALBUTAMOL SULPHATE [Suspect]
     Active Substance: ALBUTEROL SULFATE
     Indication: PRODUCT USED FOR UNKNOWN INDICATION
     Dosage: UNK UNK, PRN
  3. ADVAIR HFA [Suspect]
     Active Substance: FLUTICASONE PROPIONATE\SALMETEROL XINAFOATE
     Indication: CHRONIC OBSTRUCTIVE PULMONARY DISEASE
     Dosage: UNK, BID; 500

REACTIONS (16)
  - Eosinophil count increased [Unknown]
  - Small airways disease [Unknown]
  - Uterine cyst [Unknown]
  - Nasal polyps [Unknown]
  - Cervical cyst [Unknown]
  - Blood pressure increased [Unknown]
  - Bronchopulmonary aspergillosis allergic [Unknown]
  - Diabetes mellitus [Unknown]
  - Reversible airways obstruction [Unknown]
  - Postmenopausal haemorrhage [Unknown]
  - Drug ineffective [Unknown]
  - Conjunctivitis [Unknown]
  - Metaplasia [Unknown]
  - Stress [Unknown]
  - Blood count abnormal [Unknown]
  - Anosmia [Unknown]

NARRATIVE: CASE EVENT DATE: 20161012
